FAERS Safety Report 6953816-1 (Version None)
Quarter: 2010Q3

REPORT INFORMATION
  Report Type: 
  Country: None (occurrence: None)
  Receive Date: 20100829
  Receipt Date: 20100618
  Transmission Date: 20110219
  Serious: No
  Sender: FDA-Public Use
  Company Number: US-ABBOTT-10P-163-0653475-00

PATIENT
  Age: 82 Year
  Sex: Female

DRUGS (4)
  1. NIASPAN [Suspect]
     Indication: BLOOD CHOLESTEROL INCREASED
     Dates: start: 20100429, end: 20100531
  2. WARFARIN SODIUM [Concomitant]
     Indication: THROMBOSIS
     Dates: start: 20100101
  3. ASPIRIN [Concomitant]
     Indication: PROPHYLAXIS
     Dates: start: 20100401, end: 20100531
  4. HYDROCHLOROTHIAZIDE [Concomitant]
     Indication: HYPERTENSION
     Dosage: DAILY

REACTIONS (1)
  - ALOPECIA [None]
